FAERS Safety Report 4450879-2 (Version None)
Quarter: 2004Q3

REPORT INFORMATION
  Report Type: 
  Country: None (occurrence: None)
  Receive Date: 20040916
  Receipt Date: 20011002
  Transmission Date: 20050211
  Serious: Yes (Other)
  Sender: FDA-Public Use
  Company Number: US-BRISTOL-MYERS SQUIBB COMPANY-11538139

PATIENT
  Age: 34 Year
  Sex: Male

DRUGS (3)
  1. STADOL [Suspect]
     Indication: BACK PAIN
     Route: 045
     Dates: start: 19950101
  2. STADOL [Suspect]
     Indication: HEADACHE
     Route: 045
     Dates: start: 19950101
  3. STADOL [Suspect]
     Route: 042

REACTIONS (1)
  - DEPENDENCE [None]
